FAERS Safety Report 9936699 (Version 2)
Quarter: 2014Q1

REPORT INFORMATION
  Report Type: Spontaneous
  Country: US (occurrence: US)
  Receive Date: 20140228
  Receipt Date: 20140228
  Transmission Date: 20141002
  Serious: No
  Sender: FDA-Public Use
  Company Number: US-AMGEN-USASP2013074068

PATIENT
  Age: 55 Year
  Sex: Female

DRUGS (2)
  1. ENBREL [Suspect]
     Indication: RHEUMATOID ARTHRITIS
     Dosage: 50 MG, QWK
     Route: 065
     Dates: start: 20130114, end: 20140110
  2. XELJANZ [Concomitant]
     Dosage: UNK, THREE WEEKS

REACTIONS (10)
  - Rheumatoid arthritis [Not Recovered/Not Resolved]
  - Rheumatoid factor increased [Unknown]
  - Inflammatory marker increased [Unknown]
  - Arthritis [Recovered/Resolved]
  - Arthralgia [Recovered/Resolved]
  - Erythema [Recovered/Resolved]
  - Inflammation [Recovered/Resolved]
  - Musculoskeletal pain [Recovered/Resolved]
  - Joint range of motion decreased [Recovered/Resolved]
  - Paraesthesia [Recovered/Resolved]
